FAERS Safety Report 8113850-5 (Version None)
Quarter: 2012Q1

REPORT INFORMATION
  Report Type: 
  Country: None (occurrence: None)
  Receive Date: 20120203
  Receipt Date: 20120125
  Transmission Date: 20120608
  Serious: Yes (Hospitalization)
  Sender: FDA-Public Use
  Company Number: US-ASTRAZENECA-2012SE05197

PATIENT
  Age: 43 Year
  Sex: Female
  Weight: 59 kg

DRUGS (7)
  1. TRIZIVIR [Concomitant]
     Indication: HIV ANTIGEN POSITIVE
  2. TERGECEF [Concomitant]
  3. NEXIUM [Suspect]
     Indication: GASTROOESOPHAGEAL REFLUX DISEASE
     Route: 048
     Dates: start: 20030101
  4. PRILOSEC [Suspect]
     Route: 048
  5. AMLODIPINE [Concomitant]
     Indication: BLOOD PRESSURE ABNORMAL
  6. SPIRONOLACTONE [Concomitant]
     Indication: DIURETIC THERAPY
  7. PROAIR HFA [Concomitant]

REACTIONS (7)
  - PNEUMONIA [None]
  - HEADACHE [None]
  - BACK PAIN [None]
  - DRUG INEFFECTIVE [None]
  - DRUG DOSE OMISSION [None]
  - THROMBOSIS [None]
  - HERPES ZOSTER [None]
